FAERS Safety Report 16835222 (Version 1)
Quarter: 2019Q3

REPORT INFORMATION
  Report Type: Not Available
  Country: US (occurrence: US)
  Receive Date: 20190920
  Receipt Date: 20190920
  Transmission Date: 20191005
  Serious: Yes (Hospitalization, Other)
  Sender: FDA-Public Use
  Company Number: US-SERVIER-S19009787

PATIENT

DRUGS (6)
  1. TN UNSPECIFIED [DAUNORUBICIN HYDROCHLORIDE] [Suspect]
     Active Substance: DAUNORUBICIN HYDROCHLORIDE
     Indication: T-CELL TYPE ACUTE LEUKAEMIA
     Dosage: UNK, ON DAYS 1, 8, 15, 22
     Route: 042
  2. ONCASPAR [Suspect]
     Active Substance: PEGASPARGASE
     Indication: T-CELL TYPE ACUTE LEUKAEMIA
     Dosage: UNK, 1-2 HOURS ON DAYS 4 AND 18
     Route: 042
  3. TN UNSPECIFIED [CYTARABINE] [Suspect]
     Active Substance: CYTARABINE
     Indication: T-CELL TYPE ACUTE LEUKAEMIA
     Dosage: UNK, ON D1
     Route: 037
  4. TN UNSPECIFIED [VINCRISTINE SULFATE] [Suspect]
     Active Substance: VINCRISTINE SULFATE
     Indication: T-CELL TYPE ACUTE LEUKAEMIA
     Dosage: UNK, ON DAYS 1, 8, 15, 22
     Route: 037
  5. TN UNSPECIFIED [DEXAMETHASONE SODIUM SUCCINATE] [Suspect]
     Active Substance: DEXAMETHASONE SODIUM SUCCINATE
     Indication: T-CELL TYPE ACUTE LEUKAEMIA
     Dosage: UNK UNK, BID ON DAYS 1-22
     Route: 048
  6. TN UNSPECIFIED [METHOTREXATE SODIUM] [Suspect]
     Active Substance: METHOTREXATE SODIUM
     Indication: T-CELL TYPE ACUTE LEUKAEMIA
     Dosage: UNK, ON DAYS 8,29
     Route: 037

REACTIONS (5)
  - Hypertension [Unknown]
  - Muscle contracture [Unknown]
  - Feeding intolerance [Unknown]
  - Pancreatitis [Recovered/Resolved]
  - Mucormycosis [Recovering/Resolving]

NARRATIVE: CASE EVENT DATE: 2019
